FAERS Safety Report 22873177 (Version 3)
Quarter: 2023Q4

REPORT INFORMATION
  Report Type: Spontaneous
  Country: None (occurrence: BR)
  Receive Date: 20230828
  Receipt Date: 20231011
  Transmission Date: 20240109
  Serious: Yes (Other)
  Sender: FDA-Public Use
  Company Number: BR-Harrow Eye-2145271

PATIENT
  Age: 40 Year
  Sex: Female
  Weight: 60 kg

DRUGS (9)
  1. MAXIDEX [Suspect]
     Active Substance: DEXAMETHASONE
     Indication: Rash
     Route: 047
  2. KISQALI [Suspect]
     Active Substance: RIBOCICLIB
     Dates: start: 20230518
  3. LORATADINE [Suspect]
     Active Substance: LORATADINE
     Dates: start: 20230518
  4. AMOXICILLIN [Concomitant]
     Active Substance: AMOXICILLIN
  5. SERTRALINE [Concomitant]
     Active Substance: SERTRALINE HYDROCHLORIDE
  6. Anti-hormone [Concomitant]
  7. KISQALI [Suspect]
     Active Substance: RIBOCICLIB
  8. KISQALI [Suspect]
     Active Substance: RIBOCICLIB
  9. KISQALI [Suspect]
     Active Substance: RIBOCICLIB

REACTIONS (48)
  - Asthmatic crisis [Recovered/Resolved with Sequelae]
  - Pelvic fracture [Unknown]
  - Peripheral swelling [Not Recovered/Not Resolved]
  - Irritability [Recovering/Resolving]
  - Miliaria [Recovered/Resolved]
  - Joint swelling [Unknown]
  - Dyschezia [Recovered/Resolved]
  - Hiccups [Unknown]
  - Rash [Recovering/Resolving]
  - Visual impairment [Unknown]
  - Weight decreased [Recovering/Resolving]
  - Influenza [Unknown]
  - Secretion discharge [Not Recovered/Not Resolved]
  - Chest pain [Unknown]
  - Cough [Not Recovered/Not Resolved]
  - Hyperhidrosis [Unknown]
  - Fractured sacrum [Unknown]
  - Insomnia [Recovered/Resolved]
  - Illness [Unknown]
  - Dyspnoea [Recovered/Resolved]
  - Diarrhoea [Recovered/Resolved]
  - Decreased appetite [Unknown]
  - Fatigue [Unknown]
  - Pyrexia [Recovered/Resolved]
  - Product use in unapproved indication [Unknown]
  - Malaise [Unknown]
  - Speech disorder [Unknown]
  - Bone pain [Unknown]
  - Muscle mass [Unknown]
  - Asthenia [Unknown]
  - Tremor [Not Recovered/Not Resolved]
  - Decreased immune responsiveness [Unknown]
  - Dysstasia [Unknown]
  - Nasopharyngitis [Recovering/Resolving]
  - Pneumonia bacterial [Unknown]
  - Inflammation [Unknown]
  - Pain [Not Recovered/Not Resolved]
  - Menopausal disorder [Unknown]
  - Feeding disorder [Unknown]
  - Hot flush [Unknown]
  - Eye disorder [Unknown]
  - Swelling face [Unknown]
  - Movement disorder [Unknown]
  - Arthralgia [Unknown]
  - Pain in extremity [Unknown]
  - Metastases to spine [Unknown]
  - Varicose vein [Not Recovered/Not Resolved]
  - Gait disturbance [Not Recovered/Not Resolved]

NARRATIVE: CASE EVENT DATE: 20220901
